FAERS Safety Report 16254533 (Version 2)
Quarter: 2019Q3

REPORT INFORMATION
  Report Type: Spontaneous
  Country: FR (occurrence: FR)
  Receive Date: 20190430
  Receipt Date: 20190730
  Transmission Date: 20191004
  Serious: Yes (Hospitalization)
  Sender: FDA-Public Use
  Company Number: FR-ACCORD-124921

PATIENT
  Age: 83 Year
  Sex: Male
  Weight: 87 kg

DRUGS (2)
  1. CARBOPLATIN. [Suspect]
     Active Substance: CARBOPLATIN
     Indication: LUNG CANCER METASTATIC
     Dosage: ADMINISTRATION ON 12/02 AND 05/03
     Route: 034
     Dates: start: 20190212, end: 20190305
  2. ETOPOSIDE. [Suspect]
     Active Substance: ETOPOSIDE
     Indication: LUNG CANCER METASTATIC
     Dosage: ADMINISTRATION ON 12/02, 13/02, 14/02 AND 05/03 AND 06/03
     Route: 034
     Dates: start: 20190212, end: 20190306

REACTIONS (3)
  - Administration site extravasation [Recovered/Resolved]
  - Thoracic cavity drainage [Recovered/Resolved]
  - Dyspnoea [Not Recovered/Not Resolved]

NARRATIVE: CASE EVENT DATE: 201902
